FAERS Safety Report 14419963 (Version 3)
Quarter: 2018Q2

REPORT INFORMATION
  Report Type: Spontaneous
  Country: US (occurrence: US)
  Receive Date: 20180122
  Receipt Date: 20180615
  Transmission Date: 20180711
  Serious: Yes (Life-Threatening, Hospitalization, Other)
  Sender: FDA-Public Use
  Company Number: US-MYLANLABS-2018M1004129

PATIENT
  Age: 29 Year
  Sex: Female
  Weight: 80 kg

DRUGS (2)
  1. EPIPEN [Suspect]
     Active Substance: EPINEPHRINE
     Indication: HYPERSENSITIVITY
     Dosage: UNK
     Route: 058
  2. EPIPEN [Suspect]
     Active Substance: EPINEPHRINE
     Indication: FOOD ALLERGY
     Dosage: 0.3 MG, UNK
     Route: 058

REACTIONS (1)
  - Device failure [Recovered/Resolved]

NARRATIVE: CASE EVENT DATE: 20180112
